FAERS Safety Report 6728576-X (Version None)
Quarter: 2010Q2

REPORT INFORMATION
  Report Type: 
  Country: None (occurrence: None)
  Receive Date: 20100517
  Receipt Date: 20100507
  Transmission Date: 20101027
  Serious: Yes (Hospitalization)
  Sender: FDA-Public Use
  Company Number: JP-PFIZER INC-2010041664

PATIENT
  Age: 82 Year
  Sex: Male
  Weight: 48.98 kg

DRUGS (13)
  1. LIPITOR [Suspect]
     Indication: BLOOD CHOLESTEROL
     Dosage: 10 MG, 1X/DAY
     Route: 048
     Dates: start: 20100217, end: 20100224
  2. PLAVIX [Suspect]
     Indication: THROMBOSIS PROPHYLAXIS
     Dosage: 75 MG, 1X/DAY
     Route: 048
     Dates: start: 20100217, end: 20100224
  3. PARIET [Suspect]
     Indication: GASTRIC PH DECREASED
     Dosage: 10 MG, 1X/DAY
     Route: 048
     Dates: start: 20100217, end: 20100223
  4. RENIVACE [Suspect]
     Indication: BLOOD PRESSURE INCREASED
     Dosage: 2.5 MG, 1X/DAY
     Route: 048
     Dates: start: 20100217, end: 20100224
  5. ASPIRIN [Concomitant]
     Dosage: UNK
     Route: 048
     Dates: start: 20100217
  6. ARTIST [Concomitant]
     Dosage: UNK
     Route: 048
     Dates: start: 20100217
  7. DILTIAZEM HYDROCHLORIDE [Concomitant]
     Dosage: UNK
     Route: 048
     Dates: start: 20100217
  8. SIGMART [Concomitant]
     Dosage: UNK
     Route: 048
     Dates: start: 20100222
  9. FAMOTIDINE [Concomitant]
     Dosage: UNK
     Dates: start: 20100223
  10. MUCOSTA [Concomitant]
     Dosage: UNK
     Route: 048
     Dates: start: 20100223
  11. MAGNESIUM OXIDE [Concomitant]
     Dosage: UNK
     Route: 048
     Dates: start: 20100222
  12. DOBUTREX [Concomitant]
     Dosage: UNK
     Dates: start: 20100217, end: 20100224
  13. HEPARIN SODIUM [Concomitant]
     Dosage: UNK
     Dates: start: 20100217, end: 20100225

REACTIONS (1)
  - EOSINOPHIL COUNT INCREASED [None]
